FAERS Safety Report 22142969 (Version 5)
Quarter: 2023Q4

REPORT INFORMATION
  Report Type: Report from Study
  Country: CL (occurrence: CL)
  Receive Date: 20230327
  Receipt Date: 20231121
  Transmission Date: 20240110
  Serious: Yes (Hospitalization)
  Sender: FDA-Public Use
  Company Number: CL-002147023-NVSC2023CL067827

PATIENT
  Sex: Female

DRUGS (4)
  1. COSENTYX [Suspect]
     Active Substance: SECUKINUMAB
     Indication: Psoriatic arthropathy
     Dosage: 150 MG, QMO
     Route: 058
     Dates: start: 20230302
  2. COSENTYX [Suspect]
     Active Substance: SECUKINUMAB
     Dosage: UNK, 2ND DOSE
     Route: 065
  3. COSENTYX [Suspect]
     Active Substance: SECUKINUMAB
     Dosage: 150 MG
     Route: 065
     Dates: start: 20230411
  4. COSENTYX [Suspect]
     Active Substance: SECUKINUMAB
     Dosage: 150 MG, QMO
     Route: 058
     Dates: start: 20230302

REACTIONS (5)
  - Pneumonia [Unknown]
  - Illness [Recovering/Resolving]
  - Influenza [Recovered/Resolved]
  - Malaise [Unknown]
  - Pyrexia [Recovered/Resolved]
